FAERS Safety Report 23895986 (Version 1)
Quarter: 2024Q2

REPORT INFORMATION
  Report Type: Spontaneous
  Country: FR (occurrence: FR)
  Receive Date: 20240524
  Receipt Date: 20240524
  Transmission Date: 20240717
  Serious: Yes (Hospitalization)
  Sender: FDA-Public Use
  Company Number: FR-AFSSAPS-BS2024000282

PATIENT
  Age: 61 Year
  Sex: Male

DRUGS (3)
  1. FLUOXETINE [Suspect]
     Active Substance: FLUOXETINE HYDROCHLORIDE
     Indication: Depression
     Dosage: 20 MILLIGRAM, ONCE A DAY
     Route: 048
  2. LOVENOX [Suspect]
     Active Substance: ENOXAPARIN SODIUM
     Indication: Tricuspid valve replacement
     Dosage: 80 MILLIGRAM, ONCE A DAY
     Route: 048
     Dates: start: 20240319, end: 20240405
  3. FLUINDIONE [Suspect]
     Active Substance: FLUINDIONE
     Indication: Tricuspid valve replacement
     Dosage: 20 MILLIGRAM, ONCE A DAY
     Route: 048
     Dates: start: 20240322

REACTIONS (1)
  - Haemoptysis [Recovered/Resolved]

NARRATIVE: CASE EVENT DATE: 20240404
